FAERS Safety Report 18939074 (Version 2)
Quarter: 2022Q2

REPORT INFORMATION
  Report Type: Spontaneous
  Country: US (occurrence: US)
  Receive Date: 20210225
  Receipt Date: 20220404
  Transmission Date: 20220721
  Serious: Yes (Other)
  Sender: FDA-Public Use
  Company Number: US-GLAXOSMITHKLINE-US2021GSK052962

PATIENT
  Sex: Male

DRUGS (35)
  1. RANITIDINE [Suspect]
     Active Substance: RANITIDINE
     Indication: Dyspepsia
     Dosage: 150 MG
     Route: 065
     Dates: start: 199401, end: 201201
  2. RANITIDINE [Suspect]
     Active Substance: RANITIDINE
     Indication: Dyspepsia
     Dosage: 150 MG
     Route: 065
     Dates: start: 199401, end: 201201
  3. RANITIDINE [Suspect]
     Active Substance: RANITIDINE
     Indication: Dyspepsia
     Dosage: UNK
  4. RANITIDINE [Suspect]
     Active Substance: RANITIDINE
     Indication: Abdominal discomfort
     Dosage: UNK
  5. RANITIDINE [Suspect]
     Active Substance: RANITIDINE
     Dosage: UNK
  6. ZANTAC [Suspect]
     Active Substance: RANITIDINE HYDROCHLORIDE
     Indication: Dyspepsia
     Dosage: 150 MG BOTH
     Route: 065
     Dates: start: 199401, end: 201201
  7. ZANTAC [Suspect]
     Active Substance: RANITIDINE HYDROCHLORIDE
     Indication: Dyspepsia
     Dosage: 150 ACID REDUCER|BOTH
     Route: 065
     Dates: start: 199401, end: 201201
  8. ZANTAC [Suspect]
     Active Substance: RANITIDINE HYDROCHLORIDE
     Indication: Dyspepsia
     Dosage: 150 MG BOTH
     Route: 065
     Dates: start: 199401, end: 201201
  9. ZANTAC [Suspect]
     Active Substance: RANITIDINE HYDROCHLORIDE
     Indication: Abdominal discomfort
     Dosage: 150 ACID REDUCER|BOTH
     Route: 065
     Dates: start: 199401, end: 201201
  10. ZANTAC [Suspect]
     Active Substance: RANITIDINE HYDROCHLORIDE
     Dosage: UNK
  11. ZANTAC [Suspect]
     Active Substance: RANITIDINE HYDROCHLORIDE
     Indication: Dyspepsia
     Dosage: 150 MG BOTH
     Route: 065
     Dates: start: 199401, end: 201201
  12. ZANTAC [Suspect]
     Active Substance: RANITIDINE HYDROCHLORIDE
     Indication: Dyspepsia
     Dosage: 150 ACID REDUCER|BOTH
     Route: 065
     Dates: start: 199401, end: 201201
  13. ZANTAC [Suspect]
     Active Substance: RANITIDINE HYDROCHLORIDE
     Indication: Dyspepsia
     Dosage: 150 MG BOTH
     Route: 065
     Dates: start: 199401, end: 201201
  14. ZANTAC [Suspect]
     Active Substance: RANITIDINE HYDROCHLORIDE
     Indication: Abdominal discomfort
     Dosage: 150 ACID REDUCER|BOTH
     Route: 065
     Dates: start: 199401, end: 201201
  15. ZANTAC [Suspect]
     Active Substance: RANITIDINE HYDROCHLORIDE
     Dosage: UNK
  16. RANITIDINE [Suspect]
     Active Substance: RANITIDINE
     Indication: Dyspepsia
     Dosage: 150 MG BOTH
     Route: 065
     Dates: start: 199401, end: 201201
  17. RANITIDINE [Suspect]
     Active Substance: RANITIDINE
     Indication: Dyspepsia
     Dosage: 150 ACID REDUCER|BOTH
     Route: 065
     Dates: start: 199401, end: 201201
  18. RANITIDINE [Suspect]
     Active Substance: RANITIDINE
     Indication: Dyspepsia
     Dosage: 150 MG BOTH
     Route: 065
     Dates: start: 199401, end: 201201
  19. RANITIDINE [Suspect]
     Active Substance: RANITIDINE
     Indication: Abdominal discomfort
     Dosage: 150 ACID REDUCER|BOTH
     Route: 065
     Dates: start: 199401, end: 201201
  20. RANITIDINE [Suspect]
     Active Substance: RANITIDINE
     Dosage: 150 MG
     Route: 065
     Dates: start: 199401, end: 201201
  21. RANITIDINE [Suspect]
     Active Substance: RANITIDINE
     Indication: Dyspepsia
     Dosage: 150 MG
     Route: 065
     Dates: start: 199401, end: 201201
  22. RANITIDINE [Suspect]
     Active Substance: RANITIDINE
     Indication: Dyspepsia
     Dosage: 150 MG
     Route: 065
     Dates: start: 199401, end: 201201
  23. RANITIDINE [Suspect]
     Active Substance: RANITIDINE
     Indication: Dyspepsia
     Dosage: UNK
  24. RANITIDINE [Suspect]
     Active Substance: RANITIDINE
     Indication: Abdominal discomfort
     Dosage: UNK
  25. RANITIDINE [Suspect]
     Active Substance: RANITIDINE
     Dosage: UNK
  26. RANITIDINE [Suspect]
     Active Substance: RANITIDINE
     Indication: Dyspepsia
     Dosage: 150 MG
     Route: 065
     Dates: start: 199401, end: 201201
  27. RANITIDINE [Suspect]
     Active Substance: RANITIDINE
     Indication: Dyspepsia
     Dosage: 150 MG
     Route: 065
     Dates: start: 199401, end: 201201
  28. RANITIDINE [Suspect]
     Active Substance: RANITIDINE
     Indication: Dyspepsia
     Dosage: UNK
  29. RANITIDINE [Suspect]
     Active Substance: RANITIDINE
     Indication: Abdominal discomfort
     Dosage: UNK
  30. RANITIDINE [Suspect]
     Active Substance: RANITIDINE
     Dosage: UNK
  31. ZANTAC [Suspect]
     Active Substance: RANITIDINE HYDROCHLORIDE
     Indication: Dyspepsia
     Dosage: 150 MG BOTH
     Route: 065
     Dates: start: 199401, end: 201201
  32. ZANTAC [Suspect]
     Active Substance: RANITIDINE HYDROCHLORIDE
     Indication: Dyspepsia
     Dosage: 150 ACID REDUCER|BOTH
     Route: 065
     Dates: start: 199401, end: 201201
  33. ZANTAC [Suspect]
     Active Substance: RANITIDINE HYDROCHLORIDE
     Indication: Dyspepsia
     Dosage: UNK
  34. ZANTAC [Suspect]
     Active Substance: RANITIDINE HYDROCHLORIDE
     Indication: Abdominal discomfort
     Dosage: UNK
  35. ZANTAC [Suspect]
     Active Substance: RANITIDINE HYDROCHLORIDE
     Dosage: UNK

REACTIONS (2)
  - Renal cancer [Unknown]
  - Lung neoplasm malignant [Unknown]
